FAERS Safety Report 5442085-X (Version None)
Quarter: 2007Q3

REPORT INFORMATION
  Report Type: 
  Country: None (occurrence: None)
  Receive Date: 20070904
  Receipt Date: 20070820
  Transmission Date: 20080115
  Serious: Yes (Hospitalization, Disabling, Other)
  Sender: FDA-Public Use
  Company Number: US-ELI_LILLY_AND_COMPANY-USA040977217

PATIENT
  Age: 83 Year
  Sex: Female

DRUGS (5)
  1. FORTEO [Suspect]
     Indication: OSTEOPOROSIS
     Dosage: 20 UG, DAILY (1/D)
     Route: 058
     Dates: start: 20040831
  2. EVISTA [Suspect]
     Indication: OSTEOPOROSIS
     Dates: end: 20050825
  3. EVISTA [Suspect]
     Dosage: 60 MG, DAILY (1/D)
     Route: 048
     Dates: start: 20020101, end: 20040820
  4. RISEDRONATE SODIUM [Concomitant]
     Dosage: UNK, UNKNOWN
  5. PREVACID [Concomitant]
     Indication: GASTROOESOPHAGEAL REFLUX DISEASE

REACTIONS (20)
  - ARTHRALGIA [None]
  - BODY HEIGHT DECREASED [None]
  - BONE DISORDER [None]
  - CEREBRAL THROMBOSIS [None]
  - CHEILITIS [None]
  - CONSTIPATION [None]
  - DECUBITUS ULCER [None]
  - DYSPHASIA [None]
  - FACIAL PALSY [None]
  - FEAR [None]
  - HEADACHE [None]
  - HEMIPLEGIA [None]
  - INJECTION SITE HAEMORRHAGE [None]
  - INJECTION SITE JOINT REDNESS [None]
  - ISCHAEMIC STROKE [None]
  - JOINT RANGE OF MOTION DECREASED [None]
  - LIMB DEFORMITY [None]
  - LIP SWELLING [None]
  - PAIN IN EXTREMITY [None]
  - THINKING ABNORMAL [None]
